FAERS Safety Report 14992714 (Version 1)
Quarter: 2018Q2

REPORT INFORMATION
  Report Type: Spontaneous
  Country: US (occurrence: US)
  Receive Date: 20180517
  Receipt Date: 20180517
  Transmission Date: 20180711
  Serious: No
  Sender: FDA-Public Use
  Company Number: None

PATIENT
  Age: 66 Year
  Sex: Male
  Weight: 81.65 kg

DRUGS (9)
  1. QUERCETIN DIHYDRATE [Concomitant]
  2. MAG [Concomitant]
  3. METOPROLOL TARTRATE. [Suspect]
     Active Substance: METOPROLOL TARTRATE
     Indication: HYPERTENSION
     Dosage: ?          QUANTITY:1 DF DOSAGE FORM;?
     Route: 048
     Dates: start: 20170509, end: 20180508
  4. VIT B-12 [Concomitant]
  5. VITAMIN D [Concomitant]
     Active Substance: CHOLECALCIFEROL
  6. LA-3 (GYNOSTEMMA PENTAPHYLLUM LEAF EXTRACT) [Concomitant]
  7. LOSARTAN. [Concomitant]
     Active Substance: LOSARTAN
  8. VITAMIN C [Concomitant]
     Active Substance: ASCORBIC ACID
  9. BERBERINE HCL [Concomitant]

REACTIONS (9)
  - Vertigo [None]
  - Muscle spasms [None]
  - Memory impairment [None]
  - Anxiety [None]
  - Confusional state [None]
  - Attention deficit/hyperactivity disorder [None]
  - Visual impairment [None]
  - Abnormal dreams [None]
  - Wheezing [None]

NARRATIVE: CASE EVENT DATE: 20170807
